FAERS Safety Report 16749461 (Version 5)
Quarter: 2019Q4

REPORT INFORMATION
  Report Type: Report from Study
  Country: US (occurrence: US)
  Receive Date: 20190828
  Receipt Date: 20191217
  Transmission Date: 20200122
  Serious: Yes (Other)
  Sender: FDA-Public Use
  Company Number: PHEH2019US034593

PATIENT
  Sex: Female

DRUGS (3)
  1. PIQRAY [Suspect]
     Active Substance: ALPELISIB
     Indication: PRODUCT USED FOR UNKNOWN INDICATION
     Dosage: UNK
     Route: 048
  2. METFORMIN [Suspect]
     Active Substance: METFORMIN HYDROCHLORIDE
     Indication: BLOOD GLUCOSE INCREASED
     Route: 065
  3. PIQRAY [Suspect]
     Active Substance: ALPELISIB
     Dosage: 1 DF, QD
     Route: 048

REACTIONS (8)
  - Diarrhoea [Unknown]
  - Blood glucose increased [Unknown]
  - Pulmonary air leakage [Unknown]
  - Pollakiuria [Unknown]
  - Renal impairment [Unknown]
  - Renal function test abnormal [Unknown]
  - Weight decreased [Unknown]
  - Dehydration [Unknown]
